FAERS Safety Report 15676481 (Version 4)
Quarter: 2018Q4

REPORT INFORMATION
  Report Type: Spontaneous
  Country: GB (occurrence: GB)
  Receive Date: 20181130
  Receipt Date: 20181227
  Transmission Date: 20190205
  Serious: Yes (Hospitalization, Other)
  Sender: FDA-Public Use
  Company Number: GB-PFIZER INC-2018454267

PATIENT
  Weight: .65 kg

DRUGS (1)
  1. NITROGLYCERIN. [Suspect]
     Active Substance: NITROGLYCERIN
     Indication: PERIPHERAL ISCHAEMIA
     Dosage: 3 DF, SINGLE (A TOTAL OF 3 PATCHES OF 9CME2 WERE APPLIED)
     Route: 062

REACTIONS (1)
  - Methaemoglobinaemia [Recovered/Resolved]
